FAERS Safety Report 15470008 (Version 1)
Quarter: 2018Q4

REPORT INFORMATION
  Report Type: Spontaneous
  Country: US (occurrence: US)
  Receive Date: 20181005
  Receipt Date: 20181005
  Transmission Date: 20190205
  Serious: No
  Sender: FDA-Public Use
  Company Number: US-ASTRAZENECA-2018SF19222

PATIENT
  Sex: Female

DRUGS (3)
  1. ECOTRIN [Concomitant]
     Active Substance: ASPIRIN
  2. HEPARIN [Concomitant]
     Active Substance: HEPARIN SODIUM
     Indication: HOSPITALISATION
     Route: 058
  3. BRILINTA [Suspect]
     Active Substance: TICAGRELOR
     Indication: STENT PLACEMENT
     Dosage: TWICE DAILY
     Route: 048

REACTIONS (4)
  - Nausea [Unknown]
  - Blood pressure decreased [Unknown]
  - Dizziness [Unknown]
  - Inappropriate schedule of product administration [Unknown]
